FAERS Safety Report 4407554-X (Version None)
Quarter: 2004Q3

REPORT INFORMATION
  Report Type: 
  Country: None (occurrence: None)
  Receive Date: 20040726
  Receipt Date: 20031211
  Transmission Date: 20050211
  Serious: No
  Sender: FDA-Public Use
  Company Number: US-GLAXOSMITHKLINE-A0442782A

PATIENT

DRUGS (1)
  1. HYCAMTIN [Suspect]

REACTIONS (1)
  - NEUROPATHY PERIPHERAL [None]
